FAERS Safety Report 5764840-9 (Version None)
Quarter: 2008Q2

REPORT INFORMATION
  Report Type: 
  Country: None (occurrence: None)
  Receive Date: 20080609
  Receipt Date: 20080609
  Transmission Date: 20081010
  Serious: Yes (Hospitalization)
  Sender: FDA-Public Use
  Company Number: None

PATIENT
  Age: 53 Year
  Sex: Female

DRUGS (3)
  1. CAPECITABINE [Suspect]
     Indication: OESOPHAGEAL CARCINOMA
     Dosage: 1900 MG QD M-F PO
     Route: 048
     Dates: start: 20061220, end: 20070126
  2. CAPECITABINE [Suspect]
  3. OXALIPLATIN [Suspect]
     Indication: OESOPHAGEAL CARCINOMA
     Dosage: 124 MG EVERY 2 WEEKS IV
     Route: 042
     Dates: start: 20061220, end: 20070103

REACTIONS (1)
  - ANASTOMOTIC LEAK [None]
